FAERS Safety Report 4335802-3 (Version None)
Quarter: 2004Q2

REPORT INFORMATION
  Report Type: 
  Country: None (occurrence: None)
  Receive Date: 20040405
  Receipt Date: 20040319
  Transmission Date: 20050107
  Serious: Yes (Life-Threatening, Hospitalization, Other)
  Sender: FDA-Public Use
  Company Number: DE-SHR-04-022850

PATIENT
  Age: 47 Year
  Sex: Female
  Weight: 97.3 kg

DRUGS (36)
  1. MIRENA [Suspect]
     Indication: CONTRACEPTION
     Dosage: 20 UG/DAY, CONT, INTRA-UTERINE
     Route: 015
     Dates: start: 20011204, end: 20030701
  2. AMPICILLIN [Suspect]
     Dates: start: 20030723, end: 20030725
  3. IBUPROFEN [Suspect]
     Indication: RHEUMATIC FEVER
     Dates: start: 20030623, end: 20030625
  4. PENICILLIN [Suspect]
     Indication: RHEUMATIC FEVER
     Dates: start: 20030623, end: 20030625
  5. DOXYCYCLINE [Suspect]
     Dates: start: 20030703, end: 20030709
  6. DOXYCYCLINE [Suspect]
     Dates: end: 20030710
  7. AVELOX [Suspect]
     Dates: start: 20030703, end: 20030709
  8. GENTAMICIN SULFATE [Suspect]
     Dates: start: 20030723, end: 20030815
  9. METOPROLOL (METOPROLOL) [Concomitant]
  10. NOVOCAIN [Concomitant]
  11. PCM [Concomitant]
  12. ELZOGRAM (CEFAZOLIN SODIUM) [Concomitant]
  13. DECORTIN [Concomitant]
  14. LIQUEMIN    /GFR/(HEPARIN) [Concomitant]
  15. AMPHOTERICIN B [Concomitant]
  16. CEFUROXIME [Concomitant]
  17. METRONIDAZOLE [Concomitant]
  18. PIPERACILLIN SODIUM [Concomitant]
  19. COMBACTAM (SULBACTAM SODIUM) [Concomitant]
  20. ZOVIRAX (ACICLOVIR SODIUM) [Concomitant]
  21. HCT [Concomitant]
  22. ACC [Concomitant]
  23. RANITIDINE HCL [Concomitant]
  24. OMEPRAZOLE [Concomitant]
  25. EMBOLEX [Concomitant]
  26. CANESTEN [Concomitant]
  27. RED BLOOD CELLS [Concomitant]
  28. PLASMA [Concomitant]
  29. ENOXAPARIN SODIUM [Concomitant]
  30. BAYOTENSIN [Concomitant]
  31. LORAZEPAM [Concomitant]
  32. RAMIPRIL [Concomitant]
  33. KALINOR [Concomitant]
  34. KONAKION           /GFR [Concomitant]
  35. VALIUM         /NET/(DIAZEPAM) [Concomitant]
  36. POTASSIUM CHLORIDE [Concomitant]

REACTIONS (11)
  - ABDOMINAL PAIN [None]
  - ARTHROPATHY [None]
  - AUTOIMMUNE DISORDER [None]
  - DRUG HYPERSENSITIVITY [None]
  - ENTEROCOCCAL SEPSIS [None]
  - IMPLANT SITE INFECTION [None]
  - IUCD COMPLICATION [None]
  - LIVER FUNCTION TEST ABNORMAL [None]
  - MUSCLE HAEMORRHAGE [None]
  - RASH [None]
  - VASCULITIS [None]
